FAERS Safety Report 9153490 (Version 1)
Quarter: 2013Q1

REPORT INFORMATION
  Report Type: Spontaneous
  Country: US (occurrence: None)
  Receive Date: 20130306
  Receipt Date: 20130306
  Transmission Date: 20140127
  Serious: No
  Sender: FDA-Public Use
  Company Number: None

PATIENT
  Age: 82 Year
  Sex: Female

DRUGS (8)
  1. REVLIMID [Suspect]
     Indication: PLASMA CELL MYELOMA
     Dosage: 5MG QD X 21/28D BY MOUTH
     Route: 048
     Dates: start: 201301
  2. DEXAMETHASONE [Concomitant]
  3. SOLEDRONIC ACID [Concomitant]
  4. ASA [Concomitant]
  5. LISINOPRIL [Concomitant]
  6. SIMVASTATIN [Concomitant]
  7. CALCITONIN [Concomitant]
  8. CALCIUM/VITAMIN D [Concomitant]

REACTIONS (2)
  - Neuropathy peripheral [None]
  - Pancytopenia [None]
